FAERS Safety Report 5411502-3 (Version None)
Quarter: 2007Q3

REPORT INFORMATION
  Report Type: 
  Country: None (occurrence: None)
  Receive Date: 20070810
  Receipt Date: 20070808
  Transmission Date: 20080115
  Serious: Yes (Hospitalization)
  Sender: FDA-Public Use
  Company Number: PE-PFIZER INC-2004050714

PATIENT
  Sex: Male
  Weight: 50 kg

DRUGS (3)
  1. ZIPRASIDONE (CAPS) [Suspect]
     Indication: SCHIZOPHRENIA
     Route: 048
     Dates: start: 20040424, end: 20040617
  2. RISPERIDONE [Concomitant]
     Route: 048
  3. BIPERIDEN HYDROCHLORIDE TAB [Concomitant]
     Route: 048

REACTIONS (1)
  - AGGRESSION [None]
